FAERS Safety Report 5654438-5 (Version None)
Quarter: 2008Q1

REPORT INFORMATION
  Report Type: 
  Country: None (occurrence: None)
  Receive Date: 20080305
  Receipt Date: 20080212
  Transmission Date: 20080703
  Serious: Yes (Hospitalization)
  Sender: FDA-Public Use
  Company Number: 080206557

PATIENT
  Age: 20 Year
  Sex: Female
  Weight: 49.8957 kg

DRUGS (1)
  1. DELSYM [Suspect]
     Indication: EUPHORIC MOOD
     Dosage: ORAL
     Route: 048
     Dates: start: 20080210, end: 20080211

REACTIONS (4)
  - CATATONIA [None]
  - CONFUSIONAL STATE [None]
  - HEART RATE INCREASED [None]
  - INCORRECT DOSE ADMINISTERED [None]
